FAERS Safety Report 14505795 (Version 1)
Quarter: 2018Q1

REPORT INFORMATION
  Report Type: Spontaneous
  Country: US (occurrence: US)
  Receive Date: 20180207
  Receipt Date: 20180207
  Transmission Date: 20180509
  Serious: Yes (Other)
  Sender: FDA-Public Use
  Company Number: None

PATIENT
  Age: 91 Year
  Sex: Female

DRUGS (4)
  1. DOXYCYCLINE. [Concomitant]
     Active Substance: DOXYCYCLINE
  2. WARFARIN [Suspect]
     Active Substance: WARFARIN
  3. PREDNISONE. [Concomitant]
     Active Substance: PREDNISONE
  4. CEFTRIAXONE. [Concomitant]
     Active Substance: CEFTRIAXONE

REACTIONS (3)
  - Asthenia [None]
  - Dyspnoea [None]
  - Anticoagulation drug level above therapeutic [None]
